FAERS Safety Report 8224868-6 (Version None)
Quarter: 2012Q1

REPORT INFORMATION
  Report Type: 
  Country: None (occurrence: None)
  Receive Date: 20120321
  Receipt Date: 20120310
  Transmission Date: 20120608
  Serious: Yes (Hospitalization)
  Sender: FDA-Public Use
  Company Number: AU-SANOFI-AVENTIS-2012SA015672

PATIENT
  Age: 66 Year
  Sex: Male
  Weight: 80.65 kg

DRUGS (5)
  1. ENOXAPARIN SODIUM [Concomitant]
     Route: 048
  2. CABAZITAXEL [Suspect]
     Indication: PROSTATE CANCER METASTATIC
     Route: 042
     Dates: start: 20110309, end: 20110309
  3. CABAZITAXEL [Suspect]
     Route: 042
     Dates: start: 20120222, end: 20120222
  4. OXYCONTIN [Concomitant]
  5. PREDNISOLONE [Suspect]
     Indication: PROSTATE CANCER METASTATIC
     Route: 048
     Dates: start: 20110309

REACTIONS (1)
  - DUODENAL ULCER [None]
